FAERS Safety Report 6173150-X (Version None)
Quarter: 2009Q2

REPORT INFORMATION
  Report Type: 
  Country: None (occurrence: None)
  Receive Date: 20090430
  Receipt Date: 20090421
  Transmission Date: 20091009
  Serious: Yes (Other)
  Sender: FDA-Public Use
  Company Number: CA-PFIZER INC-2009187817

PATIENT

DRUGS (6)
  1. DEPO-PROVERA [Suspect]
     Indication: OFF LABEL USE
     Dosage: 150 MG, EVERY 12 WEEKS
     Route: 030
     Dates: start: 20080529, end: 20080529
  2. DEPO-PROVERA [Suspect]
     Indication: ENDOMETRIOSIS
     Dosage: 150 MG, EVERY 12 WEEKS
     Route: 030
     Dates: start: 20080818, end: 20080818
  3. DEPO-PROVERA [Suspect]
     Dosage: 150 MG, EVERY 12 WEEKS
     Route: 030
     Dates: start: 20081110, end: 20081110
  4. DEPO-PROVERA [Suspect]
     Dosage: 150 MG, EVERY 12 WEEKS, MOST RECENT INJECTION
     Route: 030
     Dates: start: 20090202, end: 20090202
  5. AVALIDE [Concomitant]
     Indication: HYPERTENSION
     Dosage: 300MG/25MG, 1X/DAY
     Route: 048
     Dates: start: 20070509
  6. APO-NADOL [Concomitant]
     Indication: HYPERTENSION
     Dosage: 160 MG, 1X/DAY
     Route: 048
     Dates: start: 20060911

REACTIONS (5)
  - AMENORRHOEA [None]
  - BURSITIS [None]
  - HEADACHE [None]
  - INJECTION SITE PAIN [None]
  - RHINITIS [None]
